FAERS Safety Report 11616924 (Version 2)
Quarter: 2015Q4

REPORT INFORMATION
  Report Type: Spontaneous
  Country: US (occurrence: US)
  Receive Date: 20151009
  Receipt Date: 20151027
  Transmission Date: 20160304
  Serious: No
  Sender: FDA-Public Use
  Company Number: US-PFIZER INC-2015325524

PATIENT
  Age: 89 Year
  Sex: Female
  Weight: 41 kg

DRUGS (1)
  1. ADVIL [Suspect]
     Active Substance: IBUPROFEN
     Indication: HAEMORRHOIDS
     Dosage: 200 MG, UNK
     Dates: start: 20150927

REACTIONS (5)
  - Intentional product misuse [Unknown]
  - Product use issue [Unknown]
  - Oral discomfort [Recovering/Resolving]
  - Malaise [Unknown]
  - Glossodynia [Recovering/Resolving]

NARRATIVE: CASE EVENT DATE: 20150927
